FAERS Safety Report 14461468 (Version 1)
Quarter: 2018Q1

REPORT INFORMATION
  Report Type: Report from Study
  Country: None (occurrence: US)
  Receive Date: 20180130
  Receipt Date: 20180130
  Transmission Date: 20180509
  Serious: Yes (Hospitalization, Other)
  Sender: FDA-Public Use
  Company Number: US-ABBVIE-18K-163-2215833-00

PATIENT
  Sex: Male
  Weight: 83.08 kg

DRUGS (2)
  1. HUMIRA [Suspect]
     Active Substance: ADALIMUMAB
     Indication: PSORIATIC ARTHROPATHY
     Route: 058
     Dates: start: 2017, end: 201711
  2. HUMIRA [Suspect]
     Active Substance: ADALIMUMAB
     Route: 058
     Dates: start: 20171128, end: 20180116

REACTIONS (7)
  - Swelling [Recovered/Resolved]
  - Inguinal hernia [Recovered/Resolved]
  - Arthralgia [Recovered/Resolved]
  - Sinus congestion [Not Recovered/Not Resolved]
  - Psoriatic arthropathy [Recovered/Resolved]
  - Nasopharyngitis [Recovering/Resolving]
  - Procedural pain [Recovered/Resolved]

NARRATIVE: CASE EVENT DATE: 2017
